FAERS Safety Report 19861149 (Version 1)
Quarter: 2021Q3

REPORT INFORMATION
  Report Type: Spontaneous
  Country: US (occurrence: US)
  Receive Date: 20210921
  Receipt Date: 20210921
  Transmission Date: 20211014
  Serious: No
  Sender: FDA-Public Use
  Company Number: US-IPSEN BIOPHARMACEUTICALS, INC.-2021-22516

PATIENT
  Sex: Female

DRUGS (1)
  1. DYSPORT [Suspect]
     Active Substance: ABOBOTULINUMTOXINA
     Indication: SKIN COSMETIC PROCEDURE
     Dosage: DOSE NOT REPORTED
     Route: 065
     Dates: start: 202108, end: 202108

REACTIONS (2)
  - Swelling face [Unknown]
  - Facial discomfort [Unknown]

NARRATIVE: CASE EVENT DATE: 2021
